FAERS Safety Report 6477485-2 (Version None)
Quarter: 2009Q4

REPORT INFORMATION
  Report Type: 
  Country: None (occurrence: None)
  Receive Date: 20091207
  Receipt Date: 20091126
  Transmission Date: 20100525
  Serious: Yes (Life-Threatening)
  Sender: FDA-Public Use
  Company Number: DE-SANOFI-AVENTIS-2009SA004816

PATIENT
  Age: 61 Year
  Sex: Male
  Weight: 80 kg

DRUGS (5)
  1. LANTUS [Suspect]
     Dosage: 14
     Route: 058
     Dates: start: 20020101
  2. METFORMIN HCL [Concomitant]
     Dosage: DAILY DOSE: 2 DF DOSAGE FORM EVERY DAYS
     Route: 048
     Dates: start: 20020101
  3. GLIMEPIRIDE [Concomitant]
     Dosage: DAILY DOSE: 1 DF DOSAGE FORM EVERY DAYS
     Route: 048
     Dates: start: 20020101
  4. ACETYLSALICYLIC ACID [Concomitant]
     Indication: TRANSIENT ISCHAEMIC ATTACK
     Dosage: DAILY DOSE: 1 DF DOSAGE FORM EVERY DAYS
     Route: 048
     Dates: start: 20030801
  5. XANEF [Concomitant]
     Dosage: DAILY DOSE: 1 DF DOSAGE FORM EVERY DAYS
     Route: 048
     Dates: start: 20030801

REACTIONS (2)
  - CARDIAC ARREST [None]
  - OESOPHAGEAL SQUAMOUS CELL CARCINOMA [None]
